FAERS Safety Report 8135105-5 (Version None)
Quarter: 2012Q1

REPORT INFORMATION
  Report Type: 
  Country: None (occurrence: None)
  Receive Date: 20120214
  Receipt Date: 20120130
  Transmission Date: 20120608
  Serious: Yes (Hospitalization)
  Sender: FDA-Public Use
  Company Number: GB-CELGENEUS-167-21880-11121481

PATIENT
  Age: 76 Year
  Sex: Male
  Weight: 70.8 kg

DRUGS (9)
  1. ARACHIS OLLI ENEMA [Concomitant]
     Route: 065
     Dates: start: 20111208
  2. DIFFLAM [Concomitant]
     Dosage: 45 MILLILITER
     Route: 002
     Dates: start: 20111208
  3. CYCLOPHOSPHAMIDE [Suspect]
     Route: 048
     Dates: start: 20111022
  4. REVLIMID [Suspect]
     Route: 048
     Dates: start: 20111022
  5. DEXAMETHASONE [Suspect]
     Route: 048
     Dates: start: 20111022
  6. DEXAMETHASONE [Suspect]
     Route: 048
     Dates: end: 20111206
  7. REVLIMID [Suspect]
     Route: 048
     Dates: end: 20111207
  8. CYCLOPHOSPHAMIDE [Suspect]
     Route: 048
     Dates: end: 20111126
  9. ALBUTEROL SULFATE AUTOHALER [Concomitant]
     Route: 050
     Dates: start: 20111208

REACTIONS (10)
  - ALTERED STATE OF CONSCIOUSNESS [None]
  - ELECTROLYTE IMBALANCE [None]
  - CONDITION AGGRAVATED [None]
  - CARDIAC ARREST [None]
  - ATRIAL FIBRILLATION [None]
  - HYPOTHERMIA [None]
  - CIRCULATORY COLLAPSE [None]
  - PANCREATITIS [None]
  - SEPSIS [None]
  - SYNCOPE [None]
